FAERS Safety Report 9096034 (Version 2)
Quarter: 2013Q1

REPORT INFORMATION
  Report Type: Report from Study
  Country: DE (occurrence: DE)
  Receive Date: 20130207
  Receipt Date: 20130228
  Transmission Date: 20140127
  Serious: No
  Sender: FDA-Public Use
  Company Number: DE-ROCHE-1187179

PATIENT
  Sex: Male

DRUGS (4)
  1. RANIBIZUMAB [Suspect]
     Indication: AGE-RELATED MACULAR DEGENERATION
     Dosage: LAST DOSE PRIOR TO SAE: 10/OCT/2011
     Route: 050
     Dates: start: 20110222
  2. RANIBIZUMAB [Suspect]
     Route: 050
     Dates: start: 20110322
  3. RANIBIZUMAB [Suspect]
     Route: 050
     Dates: start: 201109
  4. RANIBIZUMAB [Suspect]
     Route: 050
     Dates: start: 201110

REACTIONS (1)
  - Open angle glaucoma [Not Recovered/Not Resolved]
